FAERS Safety Report 4518726-8 (Version None)
Quarter: 2004Q4

REPORT INFORMATION
  Report Type: 
  Country: None (occurrence: None)
  Receive Date: 20041201
  Receipt Date: 20041119
  Transmission Date: 20050328
  Serious: Yes (Hospitalization)
  Sender: FDA-Public Use
  Company Number: 2004-BP-12099BP

PATIENT
  Age: 75 Year
  Sex: Male

DRUGS (2)
  1. FLOMAX [Suspect]
     Indication: URINARY RETENTION
     Dosage: 0.4 MG (0.4 MG, 1 QD), PO
     Route: 048
     Dates: start: 20041116, end: 20041117
  2. METOPROLOL TARTRATE [Suspect]
     Indication: HYPERTENSION
     Dosage: 150 MG, PO
     Route: 048
     Dates: start: 20041104, end: 20041117

REACTIONS (1)
  - LOSS OF CONSCIOUSNESS [None]
